FAERS Safety Report 6675038-4 (Version None)
Quarter: 2010Q2

REPORT INFORMATION
  Report Type: 
  Country: None (occurrence: None)
  Receive Date: 20100409
  Receipt Date: 20100405
  Transmission Date: 20101027
  Serious: Yes (Death, Other)
  Sender: FDA-Public Use
  Company Number: JP-BRISTOL-MYERS SQUIBB COMPANY-15031636

PATIENT
  Age: 72 Year
  Sex: Male
  Weight: 44 kg

DRUGS (22)
  1. TAXOL [Suspect]
     Indication: LUNG SQUAMOUS CELL CARCINOMA STAGE UNSPECIFIED
     Route: 041
     Dates: start: 20100316
  2. PARAPLATIN [Suspect]
     Indication: LUNG SQUAMOUS CELL CARCINOMA STAGE UNSPECIFIED
     Route: 041
     Dates: start: 20100316
  3. VENA [Concomitant]
  4. MORPHINE HCL ELIXIR [Concomitant]
  5. LOXONIN [Concomitant]
  6. PROCHLORPERAZINE [Concomitant]
  7. NAUZELIN [Concomitant]
  8. PREDONINE [Concomitant]
  9. ALLELOCK [Concomitant]
  10. MUCOSTA [Concomitant]
  11. FAMOTIDINE [Concomitant]
  12. DECADRON [Concomitant]
  13. LASIX [Concomitant]
  14. INOVAN [Concomitant]
  15. MEROPEN [Concomitant]
  16. FUNGUARD [Concomitant]
  17. GRAN [Concomitant]
  18. VEEN-F [Concomitant]
  19. NEOLAMIN [Concomitant]
  20. PRIMPERAN INJ [Concomitant]
  21. ALBUMIN 25% [Concomitant]
  22. IMMUNE GLOBULIN (HUMAN) [Concomitant]

REACTIONS (4)
  - BLOOD AMYLASE INCREASED [None]
  - PNEUMONIA [None]
  - RESPIRATORY FAILURE [None]
  - WHITE BLOOD CELL COUNT DECREASED [None]
